FAERS Safety Report 9550616 (Version 1)
Quarter: 2013Q3

REPORT INFORMATION
  Report Type: Spontaneous
  Country: US (occurrence: US)
  Receive Date: 20130924
  Receipt Date: 20130924
  Transmission Date: 20140515
  Serious: No
  Sender: FDA-Public Use
  Company Number: US-SANOFI-AVENTIS-2013SA004345

PATIENT
  Age: 46 Year
  Sex: Female
  Weight: 62 kg

DRUGS (6)
  1. AUBAGIO [Suspect]
     Indication: MULTIPLE SCLEROSIS
     Route: 048
     Dates: start: 20121228
  2. AUBAGIO [Suspect]
     Indication: MULTIPLE SCLEROSIS
     Route: 048
  3. FAMPRIDINE [Concomitant]
     Route: 048
  4. VITAMIN D [Concomitant]
     Dosage: DOSE:50000 UNIT(S)
     Route: 048
  5. TRAMADOL [Concomitant]
     Route: 048
  6. COPAXONE [Concomitant]

REACTIONS (4)
  - Adverse event [Unknown]
  - Gait disturbance [Unknown]
  - Drug ineffective [Unknown]
  - Extra dose administered [Unknown]
